FAERS Safety Report 21378137 (Version 1)
Quarter: 2022Q3

REPORT INFORMATION
  Report Type: Spontaneous
  Country: DE (occurrence: DE)
  Receive Date: 20220926
  Receipt Date: 20220926
  Transmission Date: 20221027
  Serious: Yes (Congenital Anomaly)
  Sender: FDA-Public Use
  Company Number: DE-EMBRYOTOX-202204746

PATIENT
  Age: 1 Day
  Sex: Male
  Weight: 3.25 kg

DRUGS (2)
  1. VENLAFAXINE [Suspect]
     Active Substance: VENLAFAXINE HYDROCHLORIDE
     Indication: Anxiety disorder
     Dosage: 37.5 MG/D
     Route: 064
     Dates: start: 20160815, end: 20170522
  2. DIMENHYDRINATE [Suspect]
     Active Substance: DIMENHYDRINATE
     Indication: Hyperemesis gravidarum
     Dosage: UNK
     Route: 064
     Dates: start: 20161020, end: 20161027

REACTIONS (4)
  - Respiratory disorder neonatal [Recovered/Resolved]
  - Hypospadias [Not Recovered/Not Resolved]
  - Microcephaly [Unknown]
  - Foetal exposure during pregnancy [Unknown]

NARRATIVE: CASE EVENT DATE: 20170501
